FAERS Safety Report 9791423 (Version 4)
Quarter: 2014Q1

REPORT INFORMATION
  Report Type: Report from Study
  Country: US (occurrence: US)
  Receive Date: 20140101
  Receipt Date: 20140314
  Transmission Date: 20141002
  Serious: Yes (Hospitalization)
  Sender: FDA-Public Use
  Company Number: PHEH2013US026376

PATIENT
  Age: 59 Year
  Sex: Female
  Weight: 64.85 kg

DRUGS (1)
  1. GILENYA [Suspect]
     Indication: MULTIPLE SCLEROSIS
     Dosage: 0.5 MG, QD
     Route: 048
     Dates: start: 20101119

REACTIONS (4)
  - Pelvic fracture [Unknown]
  - Fatigue [Unknown]
  - Dyspnoea [Unknown]
  - Fall [Unknown]
